FAERS Safety Report 18480982 (Version 2)
Quarter: 2021Q1

REPORT INFORMATION
  Report Type: Report from Study
  Country: None (occurrence: TR)
  Receive Date: 20201109
  Receipt Date: 20210106
  Transmission Date: 20210419
  Serious: Yes (Death, Other)
  Sender: FDA-Public Use
  Company Number: TR-ABBVIE-20K-161-3599825-00

PATIENT
  Sex: Male

DRUGS (8)
  1. ATACAND PLUS [Concomitant]
     Active Substance: CANDESARTAN CILEXETIL\HYDROCHLOROTHIAZIDE
     Indication: HYPERTENSION
     Route: 048
  2. ECOPRIN [Concomitant]
     Indication: PROPHYLAXIS
     Dosage: 2X1
     Route: 048
  3. NORVASC [Concomitant]
     Active Substance: AMLODIPINE BESYLATE
     Indication: HYPERTENSION
     Route: 048
  4. BETANORM MR [Concomitant]
     Indication: DIABETES MELLITUS
     Route: 048
  5. DUODOPA [Suspect]
     Active Substance: CARBIDOPA\LEVODOPA
     Indication: PARKINSON^S DISEASE
     Dosage: MORNING DOSE (ML): 7.00 CONTINUOUS DOSE (ML): 3.90 EXTRA DOSE (ML): 1.00
     Route: 050
     Dates: start: 20171123
  6. MODIWAKE [Concomitant]
     Indication: PARKINSON^S DISEASE
     Route: 048
     Dates: start: 2018
  7. DUODOPA [Suspect]
     Active Substance: CARBIDOPA\LEVODOPA
  8. BRINTELLIX [Concomitant]
     Active Substance: VORTIOXETINE HYDROBROMIDE
     Indication: PARKINSON^S DISEASE
     Route: 048
     Dates: start: 2018

REACTIONS (8)
  - Weight decreased [Not Recovered/Not Resolved]
  - Malnutrition [Not Recovered/Not Resolved]
  - Cholelithiasis [Not Recovered/Not Resolved]
  - Cholelithiasis [Recovered/Resolved]
  - Renal impairment [Not Recovered/Not Resolved]
  - Somnolence [Not Recovered/Not Resolved]
  - Cardiac arrest [Fatal]
  - Hepatic function abnormal [Not Recovered/Not Resolved]

NARRATIVE: CASE EVENT DATE: 202009
